FAERS Safety Report 25864227 (Version 1)
Quarter: 2025Q3

REPORT INFORMATION
  Report Type: Spontaneous
  Country: CN (occurrence: CN)
  Receive Date: 20250930
  Receipt Date: 20250930
  Transmission Date: 20251020
  Serious: No
  Sender: TRIS PHARMA, INC.
  Company Number: CN-TRIS PHARMA, INC.-25CN012106

PATIENT

DRUGS (2)
  1. QUILLIVANT XR [Suspect]
     Active Substance: METHYLPHENIDATE HYDROCHLORIDE
     Indication: Attention deficit hyperactivity disorder
     Dosage: 15 MILLIGRAM, QD (3 ML)
     Route: 048
     Dates: start: 202508, end: 202509
  2. QUILLIVANT XR [Suspect]
     Active Substance: METHYLPHENIDATE HYDROCHLORIDE
     Dosage: 10 MILLIGRAM, QD (2 ML)
     Route: 048
     Dates: start: 202508, end: 202508

REACTIONS (4)
  - Aggression [Unknown]
  - Agitation [Unknown]
  - Mood swings [Unknown]
  - Affect lability [Unknown]

NARRATIVE: CASE EVENT DATE: 20250801
